FAERS Safety Report 9847081 (Version 3)
Quarter: 2014Q1

REPORT INFORMATION
  Report Type: Spontaneous
  Country: US (occurrence: US)
  Receive Date: 20140127
  Receipt Date: 20140219
  Transmission Date: 20141002
  Serious: Yes (Other)
  Sender: FDA-Public Use
  Company Number: US-PFIZER INC-2014023277

PATIENT
  Sex: Male

DRUGS (2)
  1. CHANTIX [Suspect]
     Indication: SMOKING CESSATION THERAPY
     Dosage: UNK
     Dates: start: 2012
  2. CHANTIX [Suspect]
     Dosage: 0.5 MG, DAILY
     Dates: start: 201401

REACTIONS (6)
  - HIV test positive [Unknown]
  - Coronary artery disease [Unknown]
  - Nausea [Unknown]
  - Vomiting [Unknown]
  - Abnormal dreams [Unknown]
  - Emotional disorder [Unknown]
